FAERS Safety Report 14564425 (Version 1)
Quarter: 2018Q1

REPORT INFORMATION
  Report Type: Report from Study
  Country: BR (occurrence: BR)
  Receive Date: 20180222
  Receipt Date: 20180222
  Transmission Date: 20180509
  Serious: Yes (Hospitalization, Other)
  Sender: FDA-Public Use
  Company Number: PHHY2017BR014001

PATIENT
  Age: 19 Year
  Sex: Female
  Weight: 55 kg

DRUGS (3)
  1. EXJADE [Suspect]
     Active Substance: DEFERASIROX
     Indication: SICKLE CELL ANAEMIA
     Dosage: 1500 MG, QD
     Route: 048
     Dates: start: 2010
  2. EXJADE [Suspect]
     Active Substance: DEFERASIROX
     Dosage: 0.5 DF, (1 AND HALF TABLET)
     Route: 048
  3. EXJADE [Suspect]
     Active Substance: DEFERASIROX
     Dosage: 1500 MG, QD
     Route: 048
     Dates: start: 2013

REACTIONS (14)
  - Migraine [Unknown]
  - Asthenia [Unknown]
  - Eating disorder [Unknown]
  - Fatigue [Unknown]
  - Pneumonia [Recovered/Resolved]
  - Poor quality sleep [Unknown]
  - Infection [Recovered/Resolved]
  - White blood cell count increased [Recovered/Resolved]
  - Pyrexia [Recovered/Resolved]
  - Coma [Unknown]
  - Blood iron increased [Unknown]
  - Headache [Unknown]
  - Hepatitis [Unknown]
  - Malaise [Unknown]

NARRATIVE: CASE EVENT DATE: 20180107
